FAERS Safety Report 6374072-1 (Version None)
Quarter: 2009Q3

REPORT INFORMATION
  Report Type: 
  Country: None (occurrence: None)
  Receive Date: 20090924
  Receipt Date: 20090706
  Transmission Date: 20100115
  Serious: No
  Sender: FDA-Public Use
  Company Number: US-ASTRAZENECA-2009UW18664

PATIENT
  Age: 75 Year
  Sex: Female
  Weight: 91.2 kg

DRUGS (3)
  1. SEROQUEL [Suspect]
     Indication: BIPOLAR DISORDER
     Route: 048
  2. SEROQUEL [Suspect]
     Route: 048
  3. LORAZEPAM [Concomitant]
     Indication: SLEEP DISORDER

REACTIONS (3)
  - INCREASED APPETITE [None]
  - SLEEP DISORDER [None]
  - WEIGHT INCREASED [None]
